FAERS Safety Report 7781355-7 (Version None)
Quarter: 2011Q3

REPORT INFORMATION
  Report Type: 
  Country: None (occurrence: None)
  Receive Date: 20110927
  Receipt Date: 20110912
  Transmission Date: 20111222
  Serious: Yes (Hospitalization)
  Sender: FDA-Public Use
  Company Number: GR-ARROW GEN-2011-15355

PATIENT
  Age: 54 Year
  Sex: Male

DRUGS (4)
  1. PRAMIPEXOLE DIHYDROCHLORIDE [Suspect]
     Indication: PARKINSON'S DISEASE
     Dosage: 0.54 MG, DAILY
     Route: 065
  2. ENTACAPONE [Suspect]
     Indication: PARKINSON'S DISEASE
     Dosage: 1200 MG, DAILY
     Route: 065
  3. LEVODOPA [Suspect]
     Indication: PARKINSON'S DISEASE
     Dosage: 600 MG, DAILY
     Route: 065
  4. CARBIDOPA [Suspect]
     Indication: PARKINSON'S DISEASE
     Dosage: 125 MG, DAILY
     Route: 065

REACTIONS (7)
  - PYREXIA [None]
  - MUSCLE SPASMS [None]
  - TREMOR [None]
  - WITHDRAWAL SYNDROME [None]
  - NEUROLEPTIC MALIGNANT SYNDROME [None]
  - BLOOD CREATINE PHOSPHOKINASE INCREASED [None]
  - MUSCLE RIGIDITY [None]
